FAERS Safety Report 18470288 (Version 1)
Quarter: 2020Q4

REPORT INFORMATION
  Report Type: Spontaneous
  Country: US (occurrence: US)
  Receive Date: 20201106
  Receipt Date: 20201106
  Transmission Date: 20210114
  Serious: Yes (Hospitalization)
  Sender: FDA-Public Use
  Company Number: US-ROCHE-2709135

PATIENT
  Sex: Male

DRUGS (1)
  1. ESBRIET [Suspect]
     Active Substance: PIRFENIDONE
     Indication: IDIOPATHIC PULMONARY FIBROSIS
     Dosage: ONGOING: YES?3 TABLET 3 TIMES DAILY
     Route: 048
     Dates: start: 20201004

REACTIONS (3)
  - Abdominal discomfort [Unknown]
  - Pneumonia [Unknown]
  - Decreased appetite [Unknown]
